FAERS Safety Report 4299599-8 (Version None)
Quarter: 2004Q1

REPORT INFORMATION
  Report Type: 
  Country: None (occurrence: None)
  Receive Date: 20040217
  Receipt Date: 20040204
  Transmission Date: 20041129
  Serious: Yes (Hospitalization)
  Sender: FDA-Public Use
  Company Number: 2004-00473

PATIENT
  Age: 77 Year
  Sex: Female
  Weight: 44.4 kg

DRUGS (4)
  1. OXYTROL [Suspect]
     Indication: HYPERTONIC BLADDER
     Dosage: 1 PATCH, SINGLE, TRANSDERMAL
     Route: 062
     Dates: start: 20040130, end: 20040131
  2. DIGOXIN [Concomitant]
  3. PLAVIX [Concomitant]
  4. HIGH PROTEIN DRINK [Concomitant]

REACTIONS (1)
  - TREMOR [None]
